FAERS Safety Report 8901132 (Version 3)
Quarter: 2013Q1

REPORT INFORMATION
  Report Type: Spontaneous
  Country: US (occurrence: US)
  Receive Date: 20121109
  Receipt Date: 20130102
  Transmission Date: 20140127
  Serious: Yes (Hospitalization, Other)
  Sender: FDA-Public Use
  Company Number: US-PFIZER INC-2012279194

PATIENT
  Sex: Female

DRUGS (2)
  1. QUINAPRIL HCL [Suspect]
     Dosage: UNK
  2. QUINAPRIL HCL AND HYDROCHLOROTHIAZIDE [Suspect]
     Dosage: UNK

REACTIONS (3)
  - Surgery [Unknown]
  - Pulmonary oedema [Unknown]
  - Drug intolerance [Unknown]
